FAERS Safety Report 9938391 (Version 2)
Quarter: 2014Q1

REPORT INFORMATION
  Report Type: Report from Study
  Country: US (occurrence: US)
  Receive Date: 20140303
  Receipt Date: 20140303
  Transmission Date: 20141002
  Serious: Yes (Hospitalization)
  Sender: FDA-Public Use
  Company Number: US-ABBVIE-12P-163-1020570-00

PATIENT
  Age: 45 Year
  Sex: Male

DRUGS (7)
  1. HUMIRA PEN [Suspect]
     Indication: COLITIS ULCERATIVE
     Dates: start: 20121126, end: 20121126
  2. HUMIRA PEN [Suspect]
  3. HUMIRA PEN [Suspect]
  4. NEXIUM [Concomitant]
     Indication: GASTROOESOPHAGEAL REFLUX DISEASE
     Dosage: 40MG EVERY DAY
  5. CRESTOR [Concomitant]
     Indication: BLOOD CHOLESTEROL ABNORMAL
     Dosage: 10MG EVERY DAY
  6. ASACOL [Concomitant]
     Indication: COLITIS ULCERATIVE
  7. BENAZEPRIL/HCTZ [Concomitant]
     Indication: BLOOD PRESSURE ABNORMAL
     Dosage: 20MG/12.5MG

REACTIONS (4)
  - Pneumonia [Recovering/Resolving]
  - Influenza [Recovering/Resolving]
  - Oropharyngeal pain [Not Recovered/Not Resolved]
  - Staphylococcal infection [Unknown]
